FAERS Safety Report 20516813 (Version 1)
Quarter: 2022Q1

REPORT INFORMATION
  Report Type: Report from Study
  Country: CA (occurrence: CA)
  Receive Date: 20220225
  Receipt Date: 20220225
  Transmission Date: 20220423
  Serious: Yes (Hospitalization, Other)
  Sender: FDA-Public Use
  Company Number: CA-TEVA-2022-CA-2010267

PATIENT
  Age: 62 Year
  Sex: Female

DRUGS (2)
  1. CYCLOSPORINE [Suspect]
     Active Substance: CYCLOSPORINE
     Indication: Anaemia
     Route: 065
  2. ERYTHROPOIETIN [Suspect]
     Active Substance: ERYTHROPOIETIN
     Indication: Product used for unknown indication
     Route: 065

REACTIONS (6)
  - Cytomegalovirus infection [Not Recovered/Not Resolved]
  - Immunosuppression [Not Recovered/Not Resolved]
  - Sepsis [Not Recovered/Not Resolved]
  - Transfusion reaction [Not Recovered/Not Resolved]
  - Product use in unapproved indication [Not Recovered/Not Resolved]
  - Treatment failure [Not Recovered/Not Resolved]
